FAERS Safety Report 24137937 (Version 5)
Quarter: 2025Q3

REPORT INFORMATION
  Report Type: Spontaneous
  Country: US (occurrence: US)
  Receive Date: 20240725
  Receipt Date: 20250825
  Transmission Date: 20251021
  Serious: No
  Sender: AMGEN
  Company Number: US-AMGEN-USASP2024146013

PATIENT
  Sex: Female

DRUGS (23)
  1. OTEZLA [Suspect]
     Active Substance: APREMILAST
     Indication: Psoriatic arthropathy
     Dosage: 30 MILLIGRAM, BID
     Route: 048
     Dates: start: 20170809
  2. OTEZLA [Suspect]
     Active Substance: APREMILAST
     Indication: Psoriasis
  3. PREDNISONE [Suspect]
     Active Substance: PREDNISONE
     Indication: Product used for unknown indication
     Route: 065
  4. PREDNISONE [Suspect]
     Active Substance: PREDNISONE
     Route: 065
  5. PREDNISONE [Suspect]
     Active Substance: PREDNISONE
     Route: 065
  6. AZITHROMYCIN [Concomitant]
     Active Substance: AZITHROMYCIN
  7. BETAMETHASONE DIPROPIONATE [Concomitant]
     Active Substance: BETAMETHASONE DIPROPIONATE
  8. CLOBETASOL [Concomitant]
     Active Substance: CLOBETASOL
  9. CYCLOSPORINE [Concomitant]
     Active Substance: CYCLOSPORINE
  10. ESTRADIOL [Concomitant]
     Active Substance: ESTRADIOL
  11. FAMOTIDINE [Concomitant]
     Active Substance: FAMOTIDINE
  12. HYDROCODONE BITARTRATE AND ACETAMINOPHEN [Concomitant]
     Active Substance: ACETAMINOPHEN\HYDROCODONE BITARTRATE
  13. LEVOTHYROXINE [Concomitant]
     Active Substance: LEVOTHYROXINE
  14. METHYLPREDNISOLONE [Concomitant]
     Active Substance: METHYLPREDNISOLONE
  15. OMEPRAZOLE [Concomitant]
     Active Substance: OMEPRAZOLE
  16. PREMARIN [Concomitant]
     Active Substance: ESTROGENS, CONJUGATED
  17. RESTASIS [Concomitant]
     Active Substance: CYCLOSPORINE
  18. SAXENDA [Concomitant]
     Active Substance: LIRAGLUTIDE
  19. MODAFINIL [Concomitant]
     Active Substance: MODAFINIL
  20. NORTRIPTYLINE [Concomitant]
     Active Substance: NORTRIPTYLINE
  21. SUCRALFATE [Concomitant]
     Active Substance: SUCRALFATE
  22. SULFASALAZINE DELAYED-RELEASE [Concomitant]
     Active Substance: SULFASALAZINE
  23. DOXYCYCLINE HYDROCHLORIDE [Concomitant]
     Active Substance: DOXYCYCLINE HYDROCHLORIDE

REACTIONS (3)
  - Product dose omission issue [Unknown]
  - Pain [Unknown]
  - Therapy non-responder [Unknown]
